FAERS Safety Report 13977876 (Version 1)
Quarter: 2017Q3

REPORT INFORMATION
  Report Type: Spontaneous
  Country: DK (occurrence: DK)
  Receive Date: 20170915
  Receipt Date: 20170915
  Transmission Date: 20171128
  Serious: Yes (Hospitalization)
  Sender: FDA-Public Use
  Company Number: DK-TEVA-805125ROM

PATIENT
  Age: 48 Year
  Sex: Male

DRUGS (2)
  1. FUROSEMIDE. [Suspect]
     Active Substance: FUROSEMIDE
     Dosage: HIGH DOSES
     Route: 065
  2. INSULIN [Suspect]
     Active Substance: INSULIN NOS
     Route: 065

REACTIONS (2)
  - Hypokalaemia [Recovered/Resolved]
  - Paralysis [Recovering/Resolving]
